FAERS Safety Report 8550416-7 (Version None)
Quarter: 2012Q3

REPORT INFORMATION
  Report Type: 
  Country: None (occurrence: None)
  Receive Date: 20120730
  Receipt Date: 20120718
  Transmission Date: 20120928
  Serious: Yes (Hospitalization)
  Sender: FDA-Public Use
  Company Number: JP-009507513-2012SP029232

PATIENT

DRUGS (26)
  1. TELAVIC [Suspect]
     Indication: HEPATITIS C
     Route: 048
     Dates: start: 20120403, end: 20120406
  2. REBETOL [Suspect]
     Indication: HEPATITIS C
     Dosage: 600 MG, QD
     Route: 048
     Dates: start: 20120403, end: 20120406
  3. ROHYPNOL [Concomitant]
     Indication: INSOMNIA
     Dosage: UPDATE (08JUN2012)
     Route: 048
     Dates: end: 20120430
  4. LOXOPROFEN [Concomitant]
     Route: 048
     Dates: start: 20120403, end: 20120606
  5. UNKNOWNDRUG [Concomitant]
     Dosage: AS NEEDED
     Route: 061
  6. PEG-INTRON [Suspect]
     Indication: HEPATITIS C
     Dosage: 1.5 ?G/KG, QW
     Route: 058
     Dates: start: 20120403
  7. PEG-INTRON [Suspect]
     Dosage: 1.5MCG/KG/WEEK
     Route: 058
     Dates: start: 20120403, end: 20120529
  8. REBETOL [Suspect]
     Dosage: 600 MG, QD
     Route: 048
     Dates: start: 20120410, end: 20120501
  9. URSO 250 [Concomitant]
     Indication: HEPATITIS C
     Dosage: UPDATE (08JUN2012)
     Route: 048
     Dates: end: 20120408
  10. TELAVIC [Suspect]
     Route: 048
     Dates: start: 20120417, end: 20120524
  11. REBETOL [Suspect]
     Route: 048
     Dates: start: 20120622
  12. ROHYPNOL [Concomitant]
     Route: 048
     Dates: start: 20120601
  13. MAGMITT [Concomitant]
     Indication: PROPHYLAXIS
     Dosage: UPDATE (08JUN2012)
     Route: 048
     Dates: start: 20120403
  14. SELBEX [Concomitant]
     Indication: PROPHYLAXIS
     Dosage: UPDATE (08JUN2012)
     Route: 048
     Dates: start: 20120403
  15. HIRUDOID SOFT [Concomitant]
     Indication: ERYTHEMA
     Dosage: UPDATE (08JUN2012)
     Route: 065
     Dates: start: 20120405
  16. ANTIVIRAL (UNSPECIFIED) [Suspect]
     Dosage: 2250 MG, QD
     Route: 048
     Dates: start: 20120417
  17. ALLEGRA [Concomitant]
     Indication: ERYTHEMA
     Dosage: UNK UNK, UNKNOWN
     Route: 065
  18. ALLEGRA [Concomitant]
     Indication: PROPHYLAXIS
     Route: 048
  19. BETAMETHASONE SODIUM PHOSPHATE [Concomitant]
     Indication: ERYTHEMA
     Dosage: FORMULATION : LOTION
     Route: 065
  20. SELBEX [Concomitant]
     Route: 048
     Dates: start: 20120403, end: 20120606
  21. PEG-INTRON [Suspect]
     Dosage: 1.5MCG/KG/WEEK
     Route: 058
     Dates: start: 20120622
  22. REBETOL [Suspect]
     Dosage: 400 MG, QD
     Dates: start: 20120502
  23. REBETOL [Suspect]
     Route: 048
     Dates: start: 20120502, end: 20120524
  24. ANTIVIRAL (UNSPECIFIED) [Suspect]
     Indication: HEPATITIS C
     Dosage: 2250 MG, QD
     Route: 048
     Dates: start: 20120403, end: 20120406
  25. LOXOPROFEN [Concomitant]
     Indication: PROPHYLAXIS
     Dosage: UPDATE (08JUN2012)
     Route: 048
     Dates: start: 20120403
  26. UNKNOWNDRUG [Concomitant]
     Indication: PROPHYLAXIS
     Route: 048
     Dates: start: 20120530, end: 20120606

REACTIONS (3)
  - ASCITES [None]
  - HAEMOGLOBIN DECREASED [None]
  - PANCYTOPENIA [None]
